FAERS Safety Report 21502168 (Version 2)
Quarter: 2022Q4

REPORT INFORMATION
  Report Type: Spontaneous
  Country: JP (occurrence: JP)
  Receive Date: 20221025
  Receipt Date: 20221104
  Transmission Date: 20230113
  Serious: Yes (Death)
  Sender: FDA-Public Use
  Company Number: JP-MSD-M2022-44607

PATIENT
  Age: 83 Year
  Sex: Female

DRUGS (16)
  1. LAGEVRIO [Suspect]
     Active Substance: MOLNUPIRAVIR
     Indication: COVID-19 treatment
     Dosage: 800 MILLIGRAM, BID
     Route: 048
     Dates: start: 20221006, end: 20221010
  2. LEVOFLOXACIN HEMIHYDRATE [Concomitant]
     Active Substance: LEVOFLOXACIN
     Dosage: UNK, BID
     Route: 047
     Dates: start: 20220913
  3. NEOJODIN [Concomitant]
     Dosage: UNK, BID
     Route: 065
     Dates: start: 20221001
  4. GENTAMICIN SULFATE [Concomitant]
     Active Substance: GENTAMICIN SULFATE
     Dosage: UNK, BID
     Route: 061
     Dates: start: 20221001
  5. ALPROSTADIL ALFADEX [Concomitant]
     Active Substance: ALPROSTADIL ALFADEX
     Dosage: UNK, BID
     Route: 061
     Dates: start: 202210
  6. BENZOIC ACID [Concomitant]
     Active Substance: BENZOIC ACID
     Dosage: 3 MILLILITER, TID
     Route: 061
     Dates: start: 20220928
  7. EURAX [Concomitant]
     Active Substance: CROTAMITON
     Dosage: UNK, TID
     Route: 003
     Dates: start: 20220928
  8. FUROSEMIDE [Concomitant]
     Active Substance: FUROSEMIDE
     Dosage: 1 DOSAGE FORM, QD
     Route: 048
     Dates: start: 20220930
  9. LICKLE [Concomitant]
     Active Substance: ISOLEUCINE\LEUCINE\VALINE
     Dosage: UNK, TID
     Route: 048
     Dates: start: 20220930
  10. CARBOCYSTEINE [Concomitant]
     Active Substance: CARBOCYSTEINE
     Dosage: 3 DOSAGE FORM, TID
     Route: 048
     Dates: start: 20220930
  11. CALCIUM CHLORIDE\POTASSIUM CHLORIDE\SODIUM CHLORIDE\SODIUM LACTATE\SOR [Concomitant]
     Active Substance: CALCIUM CHLORIDE\POTASSIUM CHLORIDE\SODIUM CHLORIDE\SODIUM LACTATE\SORBITOL
     Dosage: 500 MILLILITER, QD
     Route: 051
     Dates: start: 20220930, end: 20221001
  12. CALCIUM CHLORIDE\POTASSIUM CHLORIDE\SODIUM CHLORIDE\SODIUM LACTATE\SOR [Concomitant]
     Active Substance: CALCIUM CHLORIDE\POTASSIUM CHLORIDE\SODIUM CHLORIDE\SODIUM LACTATE\SORBITOL
     Dosage: 500 MILLILITER, QD
     Route: 051
     Dates: start: 20221006, end: 20221014
  13. POLARAMINE [Concomitant]
     Active Substance: DEXCHLORPHENIRAMINE MALEATE
     Dosage: 2 DOSAGE FORM, BID
     Route: 048
     Dates: start: 20221005
  14. ANHIBA [Concomitant]
     Active Substance: ACETAMINOPHEN
     Dosage: 200 MILLIGRAM, QD
     Route: 054
     Dates: start: 20221006, end: 20221006
  15. ANHIBA [Concomitant]
     Active Substance: ACETAMINOPHEN
     Dosage: 200 MILLIGRAM, BID
     Route: 054
     Dates: start: 20221007, end: 20221007
  16. ANHIBA [Concomitant]
     Active Substance: ACETAMINOPHEN
     Dosage: 200 MILLIGRAM, QD
     Route: 054
     Dates: start: 20221009, end: 20221009

REACTIONS (1)
  - COVID-19 [Fatal]

NARRATIVE: CASE EVENT DATE: 20221014
